FAERS Safety Report 5264610-4 (Version None)
Quarter: 2007Q1

REPORT INFORMATION
  Report Type: 
  Country: None (occurrence: None)
  Receive Date: 20061122
  Receipt Date: 20060117
  Transmission Date: 20070707
  Serious: Yes (Hospitalization)
  Sender: FDA-Public Use
  Company Number: 2006MP000069

PATIENT
  Age: 32 Year
  Sex: Female
  Weight: 90.8 kg

DRUGS (7)
  1. GLIADEL [Suspect]
     Indication: GLIOBLASTOMA MULTIFORME
     Dosage: X1
     Dates: start: 20050707
  2. 06-BENZYLGUANINE (06BG) [Suspect]
     Indication: GLIOBLASTOMA MULTIFORME
     Dosage: 30 MG/M**2;QD
     Dates: start: 20050707, end: 20050711
  3. KEPPRA [Concomitant]
  4. LEXAPRO [Concomitant]
  5. PROTONIX [Concomitant]
  6. MULTI-VITAMINS [Concomitant]
  7. CALCIUM [Concomitant]

REACTIONS (2)
  - DIPLOPIA [None]
  - HEADACHE [None]
